FAERS Safety Report 19864311 (Version 1)
Quarter: 2021Q3

REPORT INFORMATION
  Report Type: Spontaneous
  Country: US (occurrence: US)
  Receive Date: 20210921
  Receipt Date: 20210921
  Transmission Date: 20211014
  Serious: Yes (Hospitalization)
  Sender: FDA-Public Use
  Company Number: US-ENDO PHARMACEUTICALS INC-2021-011648

PATIENT
  Age: 29 Year
  Sex: Female

DRUGS (1)
  1. KETALAR [Suspect]
     Active Substance: KETAMINE HYDROCHLORIDE
     Indication: PRODUCT USED FOR UNKNOWN INDICATION
     Dosage: UNK UNKNOWN, UNKNOWN
     Route: 065

REACTIONS (6)
  - Kidney fibrosis [Recovered/Resolved]
  - Hydronephrosis [Recovered/Resolved]
  - Liver injury [Recovered/Resolved]
  - Bladder hypertrophy [Recovered/Resolved]
  - Drug abuse [Recovered/Resolved]
  - Biliary tract disorder [Recovered/Resolved]
